FAERS Safety Report 9257461 (Version 1)
Quarter: 2013Q2

REPORT INFORMATION
  Report Type: Spontaneous
  Country: US (occurrence: US)
  Receive Date: 20130426
  Receipt Date: 20130426
  Transmission Date: 20140414
  Serious: No
  Sender: FDA-Public Use
  Company Number: US-PFIZER INC-2013127555

PATIENT
  Age: 67 Year
  Sex: Female
  Weight: 95.2 kg

DRUGS (4)
  1. LEVOXYL [Suspect]
     Indication: THYROID DISORDER
     Dosage: 175 UG, 1X/DAY
     Route: 048
     Dates: start: 2006, end: 201301
  2. LEVOXYL [Suspect]
     Dosage: 150 UG, 1X/DAY
     Route: 048
     Dates: start: 201301, end: 201304
  3. LEVOXYL [Suspect]
     Dosage: 75 UG, 1X/DAY
     Route: 048
     Dates: start: 201304
  4. LIPITOR [Concomitant]
     Dosage: 10 MG, UNK

REACTIONS (2)
  - Diarrhoea [Unknown]
  - Fatigue [Unknown]
